FAERS Safety Report 24298313 (Version 2)
Quarter: 2025Q1

REPORT INFORMATION
  Report Type: Spontaneous
  Country: US (occurrence: US)
  Receive Date: 20240909
  Receipt Date: 20250106
  Transmission Date: 20250409
  Serious: No
  Sender: SUNOVION
  Company Number: US-SUMITOMO PHARMA SWITZERLAND GMBH-2024SPA001440

PATIENT

DRUGS (5)
  1. ORGOVYX [Suspect]
     Active Substance: RELUGOLIX
     Indication: Prostate cancer
     Dosage: 360 MG, SINGLE
     Route: 048
     Dates: start: 20240530, end: 20240530
  2. ORGOVYX [Suspect]
     Active Substance: RELUGOLIX
     Dosage: 120 MG, QD
     Route: 048
     Dates: start: 20240531
  3. ASPIRIN [Concomitant]
     Active Substance: ASPIRIN
     Route: 065
  4. PREDNISONE [Concomitant]
     Active Substance: PREDNISONE
     Route: 065
  5. RIZATRIPTAN [Concomitant]
     Active Substance: RIZATRIPTAN
     Route: 065

REACTIONS (3)
  - Fatigue [Unknown]
  - Arthralgia [Unknown]
  - Headache [Unknown]

NARRATIVE: CASE EVENT DATE: 20240101
